FAERS Safety Report 8149097-6 (Version None)
Quarter: 2012Q1

REPORT INFORMATION
  Report Type: 
  Country: None (occurrence: None)
  Receive Date: 20120218
  Receipt Date: 20120112
  Transmission Date: 20120608
  Serious: No
  Sender: FDA-Public Use
  Company Number: US-ALLERGAN-1111381US

PATIENT
  Age: 67 Year
  Sex: Male

DRUGS (3)
  1. BOTOX COSMETIC [Suspect]
     Indication: SKIN WRINKLING
     Dosage: 20 UNITS, SINGLE
     Route: 030
     Dates: start: 20100907
  2. MULTI-VITAMINS [Concomitant]
     Dosage: UNK
  3. BOTOX COSMETIC [Suspect]
     Dosage: UNK
     Route: 030
     Dates: start: 20110801, end: 20110801

REACTIONS (1)
  - VISION BLURRED [None]
